FAERS Safety Report 6702893-1 (Version None)
Quarter: 2010Q2

REPORT INFORMATION
  Report Type: 
  Country: None (occurrence: None)
  Receive Date: 20100429
  Receipt Date: 20100416
  Transmission Date: 20101027
  Serious: Yes (Hospitalization)
  Sender: FDA-Public Use
  Company Number: US-ELI_LILLY_AND_COMPANY-US201004006916

PATIENT
  Age: 35 Year
  Sex: Male

DRUGS (3)
  1. CYMBALTA [Suspect]
     Indication: MAJOR DEPRESSION
     Dosage: 60 MG, UNK
     Dates: end: 20100401
  2. ZYPREXA [Suspect]
     Indication: MAJOR DEPRESSION
     Dosage: 2.5 MG, UNK
     Dates: start: 20100401, end: 20100401
  3. ATIVAN [Concomitant]
     Dosage: UNK, AS NEEDED

REACTIONS (7)
  - ABASIA [None]
  - ASTHENIA [None]
  - EXTRAPYRAMIDAL DISORDER [None]
  - HOSPITALISATION [None]
  - HYPOAESTHESIA [None]
  - MUSCLE SPASMS [None]
  - OFF LABEL USE [None]
